FAERS Safety Report 15757154 (Version 1)
Quarter: 2018Q4

REPORT INFORMATION
  Report Type: Spontaneous
  Country: CA (occurrence: CA)
  Receive Date: 20181224
  Receipt Date: 20181224
  Transmission Date: 20190205
  Serious: Yes (Life-Threatening)
  Sender: FDA-Public Use
  Company Number: CA-OTSUKA-2018_039676

PATIENT
  Age: 66 Year
  Sex: Female
  Weight: 98.87 kg

DRUGS (3)
  1. CENTRUM MULTIPLUS CALCIUM + MAGNESIUM [Concomitant]
     Indication: DELUSIONAL DISORDER, UNSPECIFIED TYPE
     Dosage: 8 MG, QD
     Route: 048
  2. ABILIFY [Suspect]
     Active Substance: ARIPIPRAZOLE
     Indication: DELUSION
     Dosage: 8 MG, QD
     Route: 048
  3. VITAMIN D [Concomitant]
     Active Substance: CHOLECALCIFEROL
     Indication: PRODUCT USED FOR UNKNOWN INDICATION
     Dosage: UNK
     Route: 065

REACTIONS (4)
  - Hypoaesthesia [Recovering/Resolving]
  - Product use in unapproved indication [Unknown]
  - Sensory disturbance [Recovering/Resolving]
  - Muscle spasms [Recovering/Resolving]
